FAERS Safety Report 8697381 (Version 2)
Quarter: 2013Q1

REPORT INFORMATION
  Report Type: Spontaneous
  Country: US (occurrence: US)
  Receive Date: 20120801
  Receipt Date: 20130125
  Transmission Date: 20140127
  Serious: Yes (Other)
  Sender: FDA-Public Use
  Company Number: US-ELI_LILLY_AND_COMPANY-US201107002037

PATIENT
  Age: 58 Year
  Sex: Female

DRUGS (8)
  1. FORTEO [Suspect]
     Indication: OSTEOPOROSIS
     Dosage: 20 UG, QD
     Route: 065
     Dates: start: 20110706
  2. FORTEO [Suspect]
     Dosage: 20 UG, QD
  3. FORTEO [Suspect]
     Dosage: 20 UG, QD
  4. FORTEO [Suspect]
     Dosage: 20 UG, QD
  5. FORTEO [Suspect]
     Dosage: 20 UG, QD
  6. FORTEO [Suspect]
     Dosage: 20 UG, QD
  7. LASIX                              /00032601/ [Concomitant]
  8. METOPROLOL SUCCINATE [Concomitant]

REACTIONS (29)
  - Syncope [Recovered/Resolved]
  - Loss of consciousness [Recovered/Resolved]
  - Presyncope [Recovered/Resolved]
  - Adrenal disorder [Unknown]
  - Fatigue [Not Recovered/Not Resolved]
  - Somnolence [Not Recovered/Not Resolved]
  - Stress [Unknown]
  - Injection site erythema [Unknown]
  - Injection site pruritus [Recovered/Resolved]
  - Injection site extravasation [Unknown]
  - Pulse abnormal [Unknown]
  - Anxiety [Unknown]
  - Gait disturbance [Unknown]
  - Psoriasis [Unknown]
  - Blood pressure fluctuation [Unknown]
  - Arthritis [Not Recovered/Not Resolved]
  - Asthenia [Unknown]
  - Dizziness [Unknown]
  - Orthostatic hypertension [Unknown]
  - Pain [Recovering/Resolving]
  - Drug dose omission [Not Recovered/Not Resolved]
  - Bone density abnormal [Not Recovered/Not Resolved]
  - Incorrect dose administered [Unknown]
  - Osteoarthritis [Not Recovered/Not Resolved]
  - Mobility decreased [Unknown]
  - Blood potassium decreased [Unknown]
  - Blood magnesium decreased [Unknown]
  - Back disorder [Not Recovered/Not Resolved]
  - Malaise [Unknown]
